FAERS Safety Report 6818497-6 (Version None)
Quarter: 2010Q3

REPORT INFORMATION
  Report Type: 
  Country: None (occurrence: None)
  Receive Date: 20100706
  Receipt Date: 20080416
  Transmission Date: 20110219
  Serious: No
  Sender: FDA-Public Use
  Company Number: US-PFIZER INC-2008034587

PATIENT
  Sex: Male

DRUGS (2)
  1. ZITHROMAX [Suspect]
  2. FEXOFENADINE HCL [Suspect]
     Indication: ILL-DEFINED DISORDER
     Route: 048
     Dates: start: 20080313

REACTIONS (1)
  - AGITATION [None]
